FAERS Safety Report 7880618 (Version 2)
Quarter: 2020Q4

REPORT INFORMATION
  Report Type: Spontaneous
  Country: AU (occurrence: AU)
  Receive Date: 20110331
  Receipt Date: 20201215
  Transmission Date: 20210114
  Serious: Yes (Hospitalization, Other)
  Sender: FDA-Public Use
  Company Number: AU-PFIZER INC-2011063662

PATIENT
  Age: 45 Year
  Sex: Female

DRUGS (1)
  1. IBUPROFEN. [Suspect]
     Active Substance: IBUPROFEN
     Dosage: 9.6-14.4G/DAY (ABOUT 50 TABLETS PER DAY)

REACTIONS (9)
  - Renal tubular acidosis [Recovered/Resolved]
  - Dental caries [Unknown]
  - Lethargy [Unknown]
  - Overdose [Unknown]
  - Oesophageal stenosis [Unknown]
  - Decreased appetite [Unknown]
  - Toxicity to various agents [Recovered/Resolved]
  - Microcytic anaemia [Unknown]
  - Gastric ulcer [Unknown]
